FAERS Safety Report 6851818-7 (Version None)
Quarter: 2010Q3

REPORT INFORMATION
  Report Type: 
  Country: None (occurrence: None)
  Receive Date: 20100717
  Receipt Date: 20071031
  Transmission Date: 20110219
  Serious: No
  Sender: FDA-Public Use
  Company Number: US-PFIZER INC-2007093384

PATIENT
  Sex: Female
  Weight: 74.545 kg

DRUGS (6)
  1. CHANTIX [Suspect]
     Indication: SMOKING CESSATION THERAPY
     Dates: start: 20070901
  2. ALL OTHER THERAPEUTIC PRODUCTS [Concomitant]
     Indication: CHRONIC OBSTRUCTIVE PULMONARY DISEASE
  3. ALL OTHER THERAPEUTIC PRODUCTS [Concomitant]
     Indication: ASTHMA
  4. OXYGEN [Concomitant]
     Indication: CHRONIC OBSTRUCTIVE PULMONARY DISEASE
  5. OXYGEN [Concomitant]
     Indication: ASTHMA
  6. CADUET [Concomitant]
     Indication: HYPERTENSION

REACTIONS (1)
  - IRRITABILITY [None]
